FAERS Safety Report 10081050 (Version 1)
Quarter: 2014Q2

REPORT INFORMATION
  Report Type: Spontaneous
  Country: US (occurrence: US)
  Receive Date: 20140416
  Receipt Date: 20140416
  Transmission Date: 20141212
  Serious: No
  Sender: FDA-Public Use
  Company Number: US-PFIZER INC-2014101417

PATIENT
  Age: 54 Year
  Sex: 0

DRUGS (7)
  1. PREMPRO [Suspect]
     Dosage: UNK
  2. INDERAL LA [Suspect]
     Dosage: UNK
  3. NEURONTIN [Suspect]
     Dosage: UNK
  4. AMBIEN [Suspect]
     Dosage: UNK
  5. BENADRYL [Suspect]
     Dosage: UNK
  6. LAMICTAL [Suspect]
     Dosage: UNK
  7. LITHIUM [Suspect]
     Dosage: UNK

REACTIONS (1)
  - Drug hypersensitivity [Unknown]
